FAERS Safety Report 8583487-2 (Version None)
Quarter: 2012Q3

REPORT INFORMATION
  Report Type: 
  Country: None (occurrence: None)
  Receive Date: 20120809
  Receipt Date: 20120801
  Transmission Date: 20120928
  Serious: Yes (Other)
  Sender: FDA-Public Use
  Company Number: US-ABBOTT-12P-163-0963255-00

PATIENT
  Sex: Male
  Weight: 93.07 kg

DRUGS (1)
  1. HUMIRA [Suspect]
     Indication: RHEUMATOID ARTHRITIS
     Dates: start: 20060101

REACTIONS (7)
  - HEPATIC FUNCTION ABNORMAL [None]
  - MOBILITY DECREASED [None]
  - ABDOMINAL INFECTION [None]
  - FALL [None]
  - INSOMNIA [None]
  - PAIN [None]
  - COMPRESSION FRACTURE [None]
